FAERS Safety Report 16023786 (Version 1)
Quarter: 2019Q1

REPORT INFORMATION
  Report Type: Spontaneous
  Country: US (occurrence: US)
  Receive Date: 20190301
  Receipt Date: 20190301
  Transmission Date: 20190418
  Serious: No
  Sender: FDA-Public Use
  Company Number: PHEH2019US008752

PATIENT
  Sex: Female

DRUGS (1)
  1. PREDNISONE. [Suspect]
     Active Substance: PREDNISONE
     Indication: PRODUCT USED FOR UNKNOWN INDICATION
     Dosage: UNK
     Route: 065

REACTIONS (14)
  - Immune system disorder [Unknown]
  - Skin atrophy [Unknown]
  - Rash [Unknown]
  - Eye swelling [Unknown]
  - Weight increased [Unknown]
  - Arthralgia [Unknown]
  - Pain [Unknown]
  - Stress [Unknown]
  - Swelling face [Unknown]
  - Urticaria [Unknown]
  - Increased appetite [Unknown]
  - Asthma [Unknown]
  - Formication [Unknown]
  - Scar [Unknown]
